FAERS Safety Report 7974558-X (Version None)
Quarter: 2011Q4

REPORT INFORMATION
  Report Type: 
  Country: None (occurrence: None)
  Receive Date: 20111213
  Receipt Date: 20111202
  Transmission Date: 20120403
  Serious: Yes (Hospitalization)
  Sender: FDA-Public Use
  Company Number: US-JNJFOC-20111202337

PATIENT
  Sex: Male
  Weight: 62.14 kg

DRUGS (17)
  1. MESALAMINE [Concomitant]
  2. NEURONTIN [Concomitant]
  3. NEXIUM [Concomitant]
  4. ATENOLOL [Concomitant]
  5. NALTREXONE HYDROCHLORIDE [Concomitant]
  6. TPN [Concomitant]
  7. REMICADE [Suspect]
     Indication: INFLAMMATORY BOWEL DISEASE
     Route: 042
     Dates: start: 20050807, end: 20100507
  8. ZOFRAN [Concomitant]
  9. BENADRYL [Concomitant]
  10. IMMUNE GLOBULIN NOS [Concomitant]
     Route: 042
     Dates: start: 20080808
  11. CALCIUM CARBONATE [Concomitant]
  12. MIRALAX [Concomitant]
  13. XOPENEX [Concomitant]
  14. MAGNESIUM CITRATE [Concomitant]
  15. ACETAMINOPHEN [Concomitant]
  16. PULMICORT [Concomitant]
  17. PROVIGIL [Concomitant]

REACTIONS (1)
  - GASTROENTERITIS [None]
